FAERS Safety Report 5963581-2 (Version None)
Quarter: 2008Q4

REPORT INFORMATION
  Report Type: 
  Country: None (occurrence: None)
  Receive Date: 20081124
  Receipt Date: 20081022
  Transmission Date: 20090506
  Serious: No
  Sender: FDA-Public Use
  Company Number: US-BAYER-200836594NA

PATIENT
  Age: 59 Year
  Sex: Male
  Weight: 74 kg

DRUGS (2)
  1. ULTRAVIST 370 [Suspect]
     Indication: HEPATIC CYST
     Dosage: TOTAL DAILY DOSE: 100 ML  UNIT DOSE: 500 ML
     Route: 042
     Dates: start: 20081022, end: 20081022
  2. ULTRAVIST (PHARMACY BULK) [Concomitant]
     Route: 048
     Dates: start: 20081022, end: 20081022

REACTIONS (2)
  - PRURITUS [None]
  - URTICARIA [None]
